FAERS Safety Report 9362167 (Version 1)
Quarter: 2013Q2

REPORT INFORMATION
  Report Type: Spontaneous
  Country: US (occurrence: US)
  Receive Date: 20130622
  Receipt Date: 20130622
  Transmission Date: 20140414
  Serious: Yes (Hospitalization, Other)
  Sender: FDA-Public Use
  Company Number: US-GILEAD-2013-0077211

PATIENT
  Age: 54 Year
  Sex: Male

DRUGS (2)
  1. COMPLERA [Suspect]
     Indication: HIV INFECTION
     Dosage: UNK
     Route: 048
     Dates: start: 20130411, end: 20130528
  2. VALACICLOVIR [Concomitant]
     Dosage: UNK
     Dates: start: 20130603

REACTIONS (2)
  - Dehydration [Unknown]
  - Renal failure acute [Recovered/Resolved]
